FAERS Safety Report 9220872 (Version 1)
Quarter: 2013Q2

REPORT INFORMATION
  Report Type: Spontaneous
  Country: FR (occurrence: FR)
  Receive Date: 20130409
  Receipt Date: 20130409
  Transmission Date: 20140414
  Serious: Yes (Other)
  Sender: FDA-Public Use
  Company Number: FR-B.I. PHARMACEUTICALS,INC./RIDGEFIELD-2013-FF-01143FF

PATIENT
  Age: 83 Year
  Sex: Female
  Weight: 70 kg

DRUGS (5)
  1. PRADAXA [Suspect]
     Indication: THROMBOSIS PROPHYLAXIS
     Dosage: 220 MG
     Route: 048
     Dates: start: 20121214, end: 20121217
  2. CO-KENZEN [Concomitant]
     Indication: HYPERTENSION
     Dosage: 16/12.5
     Route: 048
     Dates: start: 201001
  3. DILTIAZEM [Concomitant]
     Indication: HYPERTENSION
     Dosage: 200 MG
     Route: 048
     Dates: start: 201001
  4. RILMENIDINE [Concomitant]
     Indication: HYPERTENSION
     Dosage: 1 MG
     Route: 048
     Dates: start: 201001
  5. PARACETAMOL [Concomitant]
     Indication: PAIN
     Dosage: 3 G
     Route: 048
     Dates: start: 201209

REACTIONS (3)
  - Muscle haemorrhage [Recovered/Resolved]
  - Anaemia [Unknown]
  - Sciatica [Unknown]
